FAERS Safety Report 8022649-X (Version None)
Quarter: 2012Q1

REPORT INFORMATION
  Report Type: 
  Country: None (occurrence: None)
  Receive Date: 20120104
  Receipt Date: 20111229
  Transmission Date: 20120608
  Serious: Yes (Other)
  Sender: FDA-Public Use
  Company Number: ES-GLAXOSMITHKLINE-B0772797A

PATIENT
  Age: 78 Year
  Sex: Male
  Weight: 90 kg

DRUGS (7)
  1. TRAMADOL HCL [Concomitant]
  2. NITROGLYCERIN [Concomitant]
  3. TOLTERODINE TARTRATE [Concomitant]
  4. ACETAMINOPHEN [Concomitant]
  5. DUTASTERIDE/TAMSULOSIN HYDROCHLORIDE [Suspect]
     Indication: BENIGN PROSTATIC HYPERPLASIA
     Dates: start: 20110515, end: 20110715
  6. FINASTERIDE [Concomitant]
  7. ACETYLSALICYLIC ACID SRT [Concomitant]

REACTIONS (2)
  - URINARY INCONTINENCE [None]
  - CYSTITIS NONINFECTIVE [None]
